FAERS Safety Report 24747306 (Version 1)
Quarter: 2024Q4

REPORT INFORMATION
  Report Type: Spontaneous
  Country: GB (occurrence: GB)
  Receive Date: 20241218
  Receipt Date: 20241218
  Transmission Date: 20250114
  Serious: Yes (Other)
  Sender: TEVA
  Company Number: GB-MHRA-TPP49592253C9165183YC1733493668089

PATIENT
  Age: 61 Year
  Sex: Female
  Weight: 96 kg

DRUGS (17)
  1. TRIMETHOPRIM [Suspect]
     Active Substance: TRIMETHOPRIM
     Indication: Product used for unknown indication
     Dosage: 200MG TABLETS
     Route: 065
     Dates: start: 20241009
  2. ACETAMINOPHEN [Concomitant]
     Active Substance: ACETAMINOPHEN
     Indication: Product used for unknown indication
     Dosage: TAKE 1-2 TABLETS 4 TIMES/DAY, AS REQUIRED. MAX ...
     Route: 065
     Dates: start: 20240610
  3. CLONAZEPAM [Concomitant]
     Active Substance: CLONAZEPAM
     Dosage: HALF TABLET IN THE MORNING, 1 TABLET AT NIGHT
     Route: 065
     Dates: start: 20240610
  4. CITALOPRAM [Concomitant]
     Active Substance: CITALOPRAM
     Indication: Product used for unknown indication
     Dosage: TAKE 1 DAILY
     Route: 065
     Dates: start: 20241022
  5. LANSOPRAZOLE [Concomitant]
     Active Substance: LANSOPRAZOLE
     Indication: Product used for unknown indication
     Route: 065
     Dates: start: 20240610
  6. OXYCODONE HYDROCHLORIDE [Concomitant]
     Active Substance: OXYCODONE HYDROCHLORIDE
     Indication: Product used for unknown indication
     Dosage: TAKE ONE EVERY 12 HRS
     Route: 065
     Dates: start: 20240617
  7. PREDNISOLONE [Concomitant]
     Active Substance: PREDNISOLONE
     Indication: Product used for unknown indication
     Route: 065
     Dates: start: 20240610, end: 20241022
  8. HALOPERIDOL [Concomitant]
     Active Substance: HALOPERIDOL
     Indication: Product used for unknown indication
     Dosage: TIME INTERVAL: 0.33333333 DAYS: 0.5ML THREE TIMES DAILY, IF NEEDED OR AS NEEDED.
     Route: 065
     Dates: start: 20240617, end: 20240927
  9. EPIPEN [Concomitant]
     Active Substance: EPINEPHRINE
     Indication: Product used for unknown indication
     Dosage: USE AS DIRECTED
     Route: 065
     Dates: start: 20240610
  10. OXYCODONE HYDROCHLORIDE [Concomitant]
     Active Substance: OXYCODONE HYDROCHLORIDE
     Indication: Product used for unknown indication
     Dosage: TAKE 15-20ML AS REQUIRED EVERY 4-6 HOURS
     Route: 065
     Dates: start: 20240610
  11. LIBRA [Concomitant]
     Indication: Product used for unknown indication
     Dosage: USE AS DIRECTED
     Route: 065
     Dates: start: 20241113
  12. IBUPROFEN [Concomitant]
     Active Substance: IBUPROFEN
     Indication: Product used for unknown indication
     Dosage: APPLY 3-4 TIMES/DAY
     Route: 065
     Dates: start: 20240828
  13. CYCLIZINE [Concomitant]
     Active Substance: CYCLIZINE
     Indication: Product used for unknown indication
     Route: 065
     Dates: start: 20240927
  14. MIRTAZAPINE [Concomitant]
     Active Substance: MIRTAZAPINE
     Indication: Product used for unknown indication
     Route: 065
     Dates: start: 20240610
  15. DOCUSATE SODIUM [Concomitant]
     Active Substance: DOCUSATE SODIUM
     Indication: Product used for unknown indication
     Dosage: TAKE ONE 4 TIMES/DAY
     Route: 065
     Dates: start: 20240617
  16. ADCAL [Concomitant]
     Indication: Product used for unknown indication
     Dosage: TAKE ONE DAILY
     Route: 065
     Dates: start: 20240910
  17. METOCLOPRAMIDE [Concomitant]
     Active Substance: METOCLOPRAMIDE
     Indication: Product used for unknown indication
     Route: 065
     Dates: start: 20241022

REACTIONS (1)
  - Hallucination [Recovered/Resolved]

NARRATIVE: CASE EVENT DATE: 20241010
